FAERS Safety Report 25229290 (Version 1)
Quarter: 2025Q2

REPORT INFORMATION
  Report Type: Report from Study
  Country: AT (occurrence: AT)
  Receive Date: 20250423
  Receipt Date: 20250423
  Transmission Date: 20250717
  Serious: Yes (Other)
  Sender: NOVARTIS
  Company Number: AT-002147023-NVSC2025AT035120

PATIENT
  Sex: Female

DRUGS (4)
  1. VIJOICE [Suspect]
     Active Substance: ALPELISIB
     Indication: PIK3CA related overgrowth spectrum
     Dosage: 125 MG, QD (AT NIGHT)
     Route: 048
     Dates: start: 20240304
  2. VIJOICE [Suspect]
     Active Substance: ALPELISIB
     Indication: Klippel-Trenaunay syndrome
     Dosage: 125 MG, QD
     Route: 048
     Dates: start: 20241205
  3. VIJOICE [Suspect]
     Active Substance: ALPELISIB
     Route: 048
  4. VIJOICE [Suspect]
     Active Substance: ALPELISIB
     Route: 048

REACTIONS (6)
  - Vomiting [Recovered/Resolved]
  - Gastrointestinal pain [Recovered/Resolved]
  - Menstruation irregular [Recovered/Resolved]
  - Weight decreased [Recovered/Resolved]
  - Influenza [Unknown]
  - Bronchitis [Unknown]

NARRATIVE: CASE EVENT DATE: 20250101
